FAERS Safety Report 4815792-7 (Version None)
Quarter: 2005Q4

REPORT INFORMATION
  Report Type: 
  Country: None (occurrence: None)
  Receive Date: 20051031
  Receipt Date: 20051024
  Transmission Date: 20060501
  Serious: Yes (Other)
  Sender: FDA-Public Use
  Company Number: GB-GLAXOSMITHKLINE-B0398390A

PATIENT
  Age: 25 Year
  Sex: Male
  Weight: 70 kg

DRUGS (6)
  1. FORTUM [Suspect]
     Indication: LOWER RESPIRATORY TRACT INFECTION
     Dosage: 3G PER DAY
     Route: 042
     Dates: start: 20050809, end: 20050811
  2. TOBRAMYCIN [Concomitant]
     Indication: LOWER RESPIRATORY TRACT INFECTION
     Dosage: 600MG PER DAY
     Route: 042
     Dates: start: 20050809, end: 20050823
  3. CREON [Concomitant]
     Route: 065
  4. FLUCLOXACILLIN [Concomitant]
     Route: 065
  5. MULTI-VITAMINS [Concomitant]
     Route: 065
  6. VITAMIN E [Concomitant]
     Route: 065

REACTIONS (4)
  - ASPARTATE AMINOTRANSFERASE INCREASED [None]
  - GAMMA-GLUTAMYLTRANSFERASE INCREASED [None]
  - INFLUENZA LIKE ILLNESS [None]
  - THERAPY NON-RESPONDER [None]
